FAERS Safety Report 11205040 (Version 1)
Quarter: 2015Q2

REPORT INFORMATION
  Report Type: Spontaneous
  Country: HU (occurrence: HU)
  Receive Date: 20150622
  Receipt Date: 20150622
  Transmission Date: 20150821
  Serious: Yes (Death, Hospitalization)
  Sender: FDA-Public Use
  Company Number: HU-BAYER-2015-345343

PATIENT
  Sex: Male

DRUGS (2)
  1. STIVARGA [Suspect]
     Active Substance: REGORAFENIB
     Indication: COLORECTAL CANCER METASTATIC
     Dosage: UNK
     Route: 048
     Dates: start: 20150112, end: 20150201
  2. STIVARGA [Suspect]
     Active Substance: REGORAFENIB
     Indication: COLORECTAL CANCER METASTATIC
     Dosage: UNK
     Route: 048
     Dates: start: 20141215, end: 20150104

REACTIONS (7)
  - General physical health deterioration [Not Recovered/Not Resolved]
  - Polyp [None]
  - Gastric perforation [None]
  - Haematochezia [Recovering/Resolving]
  - Anaemia [Recovering/Resolving]
  - Colorectal cancer metastatic [Fatal]
  - Haematuria [Recovering/Resolving]

NARRATIVE: CASE EVENT DATE: 201502
